FAERS Safety Report 16892233 (Version 2)
Quarter: 2019Q4

REPORT INFORMATION
  Report Type: Spontaneous
  Country: CA (occurrence: CA)
  Receive Date: 20191007
  Receipt Date: 20191015
  Transmission Date: 20200122
  Serious: Yes (Hospitalization, Other)
  Sender: FDA-Public Use
  Company Number: CA-TEVA-2019-CA-1117229

PATIENT
  Age: 54 Year
  Sex: Male

DRUGS (12)
  1. DULOXETINE. [Suspect]
     Active Substance: DULOXETINE
     Indication: NEURALGIA
     Dosage: 30 MILLIGRAM DAILY;
     Route: 065
  2. REVLIMID [Suspect]
     Active Substance: LENALIDOMIDE
     Indication: PLASMA CELL MYELOMA
     Dosage: 5 MILLIGRAM DAILY;
     Route: 043
  3. NORTRIPTYLINE [Suspect]
     Active Substance: NORTRIPTYLINE
     Indication: NEURALGIA
     Dosage: 75 MILLIGRAM DAILY;
     Route: 065
  4. NORTRIPTYLINE [Suspect]
     Active Substance: NORTRIPTYLINE
     Indication: ANXIETY
  5. REVLIMID [Suspect]
     Active Substance: LENALIDOMIDE
     Dosage: 10 MILLIGRAM DAILY;
     Route: 048
  6. BACLOFEN. [Concomitant]
     Active Substance: BACLOFEN
     Indication: PRODUCT USED FOR UNKNOWN INDICATION
     Route: 065
  7. GABAPENTIN. [Concomitant]
     Active Substance: GABAPENTIN
     Indication: PRODUCT USED FOR UNKNOWN INDICATION
     Dosage: 2700 MILLIGRAM DAILY;
     Route: 065
  8. BUPROPION. [Suspect]
     Active Substance: BUPROPION
     Indication: ANXIETY
     Dosage: 150 MILLIGRAM DAILY;
     Route: 065
  9. BUPROPION. [Suspect]
     Active Substance: BUPROPION
     Dosage: 150 MILLIGRAM DAILY;
     Route: 065
  10. NABILONE [Suspect]
     Active Substance: NABILONE
     Indication: NEURALGIA
     Dosage: 1 MILLIGRAM DAILY;
     Route: 065
  11. NABILONE [Suspect]
     Active Substance: NABILONE
     Dosage: .25 MILLIGRAM DAILY;
     Route: 065
  12. ASA [Concomitant]
     Active Substance: ASPIRIN
     Indication: ANTICOAGULANT THERAPY
     Dosage: 81 MILLIGRAM DAILY;
     Route: 065

REACTIONS (2)
  - Diabetes mellitus [Unknown]
  - Dyspnoea [Unknown]
